FAERS Safety Report 13512665 (Version 1)
Quarter: 2017Q2

REPORT INFORMATION
  Report Type: Spontaneous
  Country: US (occurrence: US)
  Receive Date: 20170504
  Receipt Date: 20170504
  Transmission Date: 20170830
  Serious: Yes (Other)
  Sender: FDA-Public Use
  Company Number: US-BAYER-2017-084807

PATIENT
  Age: 26 Year
  Sex: Male

DRUGS (1)
  1. BETASERON [Suspect]
     Active Substance: INTERFERON BETA-1B
     Indication: MULTIPLE SCLEROSIS
     Dosage: 0.3 MG, QOD

REACTIONS (6)
  - Multiple sclerosis relapse [None]
  - Hemiparaesthesia [None]
  - Seasonal allergy [None]
  - Urinary tract infection [None]
  - Hypoaesthesia [None]
  - Musculoskeletal stiffness [None]
